FAERS Safety Report 22083308 (Version 1)
Quarter: 2023Q1

REPORT INFORMATION
  Report Type: Spontaneous
  Country: US (occurrence: US)
  Receive Date: 20230310
  Receipt Date: 20230310
  Transmission Date: 20230417
  Serious: Yes (Other)
  Sender: FDA-Public Use
  Company Number: US-SUNOVION-2023SUN000391

PATIENT
  Age: 75 Year
  Sex: Female

DRUGS (1)
  1. KYNMOBI [Suspect]
     Active Substance: APOMORPHINE HYDROCHLORIDE
     Dosage: 30 MG, QD
     Route: 060

REACTIONS (4)
  - Parkinson^s disease [Unknown]
  - Stress [Unknown]
  - Speech disorder [Unknown]
  - Hypokinesia [Unknown]
